FAERS Safety Report 5135982-6 (Version None)
Quarter: 2006Q4

REPORT INFORMATION
  Report Type: 
  Country: None (occurrence: None)
  Receive Date: 20061020
  Receipt Date: 20061005
  Transmission Date: 20070319
  Serious: Yes (Life-Threatening)
  Sender: FDA-Public Use
  Company Number: 2006-240

PATIENT
  Age: 46 Year
  Sex: Female

DRUGS (3)
  1. CITALOPRAM [Suspect]
     Indication: ANXIETY
     Dosage: 20MG PER DAY
     Dates: start: 20060824, end: 20060831
  2. CITALOPRAM [Suspect]
     Indication: DEPRESSION
     Dosage: 20MG PER DAY
     Dates: start: 20060824, end: 20060831
  3. MIXTARD HUMAN 70/30 [Concomitant]

REACTIONS (1)
  - HYPOGLYCAEMIA [None]
